FAERS Safety Report 24788338 (Version 1)
Quarter: 2024Q4

REPORT INFORMATION
  Report Type: Spontaneous
  Country: FR (occurrence: FR)
  Receive Date: 20241230
  Receipt Date: 20241230
  Transmission Date: 20250115
  Serious: Yes (Hospitalization, Other)
  Sender: ORGANON
  Company Number: None

PATIENT
  Age: 18 Year
  Sex: Female
  Weight: 67 kg

DRUGS (3)
  1. NEXPLANON [Suspect]
     Active Substance: ETONOGESTREL
     Indication: Hormonal contraception
     Dosage: 1 DOSAGE FORM (IMPLANT FOR SUBCUTANEOUS USE), ONCE
     Dates: start: 20231016
  2. ATENOLOL [Suspect]
     Active Substance: ATENOLOL
     Indication: Dilated cardiomyopathy
     Dosage: 1 DOSAGE FORM, Q24H (FILM-COATED TABLET, SCORED)
     Dates: start: 20151008
  3. IDEBENONE [Suspect]
     Active Substance: IDEBENONE
     Indication: Friedreich^s ataxia
     Dosage: 1 DOSAGE FORM, Q8H
     Dates: start: 201601, end: 202412

REACTIONS (1)
  - Immune thrombocytopenia [Not Recovered/Not Resolved]

NARRATIVE: CASE EVENT DATE: 20231108
